FAERS Safety Report 19389457 (Version 4)
Quarter: 2021Q3

REPORT INFORMATION
  Report Type: Spontaneous
  Country: ZA (occurrence: ZA)
  Receive Date: 20210608
  Receipt Date: 20210705
  Transmission Date: 20211014
  Serious: Yes (Death)
  Sender: FDA-Public Use
  Company Number: ZA-ROCHE-2844438

PATIENT
  Sex: Female
  Weight: 96 kg

DRUGS (1)
  1. ACTEMRA [Suspect]
     Active Substance: TOCILIZUMAB
     Indication: COVID-19
     Route: 042
     Dates: start: 20210509, end: 20210509

REACTIONS (2)
  - COVID-19 [Fatal]
  - Off label use [Fatal]
